FAERS Safety Report 8059480-5 (Version None)
Quarter: 2012Q1

REPORT INFORMATION
  Report Type: 
  Country: None (occurrence: None)
  Receive Date: 20120120
  Receipt Date: 20120117
  Transmission Date: 20120608
  Serious: Yes (Hospitalization)
  Sender: FDA-Public Use
  Company Number: FI-ROCHE-1031398

PATIENT
  Sex: Female

DRUGS (3)
  1. CORTICOSTEROID NOS [Concomitant]
  2. ACTEMRA [Suspect]
     Dates: start: 20120107
  3. ACTEMRA [Suspect]
     Indication: RHEUMATOID ARTHRITIS
     Route: 042
     Dates: start: 20111207

REACTIONS (1)
  - EMBOLISM ARTERIAL [None]
